FAERS Safety Report 7791589-3 (Version None)
Quarter: 2011Q4

REPORT INFORMATION
  Report Type: 
  Country: None (occurrence: None)
  Receive Date: 20111003
  Receipt Date: 20110923
  Transmission Date: 20120403
  Serious: Yes (Hospitalization)
  Sender: FDA-Public Use
  Company Number: CA-ABBOTT-11P-028-0858524-00

PATIENT
  Sex: Female
  Weight: 50.9 kg

DRUGS (8)
  1. UNKNOWN DRUG [Concomitant]
     Indication: SLEEP DISORDER THERAPY
     Route: 065
  2. DEMEROL [Concomitant]
     Indication: CROHN'S DISEASE
     Route: 065
     Dates: start: 20110612, end: 20110621
  3. HUMIRA [Suspect]
     Indication: CROHN'S DISEASE
     Route: 058
     Dates: start: 20110612
  4. UNKNOWN DRUG [Concomitant]
     Indication: CROHN'S DISEASE
     Route: 065
  5. XANAX [Concomitant]
     Indication: PRODUCT USED FOR UNKNOWN INDICATION
     Route: 065
  6. CYTOLIN [Concomitant]
     Indication: PRODUCT USED FOR UNKNOWN INDICATION
     Route: 065
  7. PRILOSEC [Concomitant]
     Indication: PRODUCT USED FOR UNKNOWN INDICATION
     Route: 048
  8. CORTISONE ACETATE [Concomitant]
     Indication: CROHN'S DISEASE
     Dosage: 50 MG, DECREASING AT 5 MG INTERVALS
     Route: 048
     Dates: start: 20110612

REACTIONS (11)
  - NAUSEA [None]
  - HYPOTENSION [None]
  - INJECTION SITE DISCOLOURATION [None]
  - INJECTION SITE PRURITUS [None]
  - DIZZINESS [None]
  - DECREASED APPETITE [None]
  - APHAGIA [None]
  - DIARRHOEA [None]
  - INJECTION SITE WARMTH [None]
  - INJECTION SITE SWELLING [None]
  - INJECTION SITE REACTION [None]
